FAERS Safety Report 4631533-0 (Version None)
Quarter: 2005Q2

REPORT INFORMATION
  Report Type: 
  Country: None (occurrence: None)
  Receive Date: 20050407
  Receipt Date: 20050328
  Transmission Date: 20051028
  Serious: Yes (Life-Threatening, Hospitalization, Other)
  Sender: FDA-Public Use
  Company Number: 2005-02-1061

PATIENT
  Age: 42 Year
  Sex: Male
  Weight: 117.028 kg

DRUGS (3)
  1. OXYMETAZOLINE HCL [Suspect]
     Dosage: ONCE QD NAS AER SPRAY
     Route: 045
  2. CLARITIN-D ALLERGY/CONGESTION 12 HR [Suspect]
     Dosage: BID ORAL
     Route: 048
     Dates: end: 20001110
  3. NASONEDX (MOMETASONE FUROATE) [Concomitant]

REACTIONS (10)
  - BLOOD CREATINE PHOSPHOKINASE INCREASED [None]
  - CARDIOMEGALY [None]
  - CORONARY OSTIAL STENOSIS [None]
  - DRUG DEPENDENCE [None]
  - ELECTROCARDIOGRAM ST-T CHANGE [None]
  - HEADACHE [None]
  - HEPATIC ENZYME INCREASED [None]
  - MYOCARDIAL INFARCTION [None]
  - PARAESTHESIA [None]
  - PHARMACEUTICAL PRODUCT COMPLAINT [None]
